FAERS Safety Report 13779906 (Version 4)
Quarter: 2017Q3

REPORT INFORMATION
  Report Type: Report from Study
  Country: US (occurrence: US)
  Receive Date: 20170723
  Receipt Date: 20170821
  Transmission Date: 20171127
  Serious: Yes (Other)
  Sender: FDA-Public Use
  Company Number: PHEH2017US021929

PATIENT
  Sex: Female

DRUGS (1)
  1. AFINITOR [Suspect]
     Active Substance: EVEROLIMUS
     Indication: METASTATIC CARCINOID TUMOUR
     Dosage: UNK
     Route: 065

REACTIONS (7)
  - Diabetes mellitus [Unknown]
  - Dysgeusia [Unknown]
  - Decreased appetite [Unknown]
  - Malignant mesenteric neoplasm [Unknown]
  - Hypertension [Unknown]
  - Small intestine carcinoma [Unknown]
  - Diarrhoea [Unknown]
